FAERS Safety Report 19430972 (Version 1)
Quarter: 2021Q2

REPORT INFORMATION
  Report Type: Spontaneous
  Country: US (occurrence: US)
  Receive Date: 20210618
  Receipt Date: 20210618
  Transmission Date: 20210717
  Serious: No
  Sender: FDA-Public Use
  Company Number: US-ROCHE-2811274

PATIENT
  Sex: Female

DRUGS (2)
  1. ACTEMRA [Suspect]
     Active Substance: TOCILIZUMAB
     Indication: RHEUMATOID ARTHRITIS
     Dosage: ACTEMRA ACTPEN; 162 MG/ 0.9 M
     Route: 058
     Dates: start: 20210313
  2. ACTEMRA [Suspect]
     Active Substance: TOCILIZUMAB

REACTIONS (6)
  - Sinus disorder [Unknown]
  - Constipation [Unknown]
  - Myalgia [Unknown]
  - Fatigue [Unknown]
  - Injection site swelling [Unknown]
  - Pruritus [Unknown]
